FAERS Safety Report 22730468 (Version 2)
Quarter: 2024Q2

REPORT INFORMATION
  Report Type: Spontaneous
  Country: DE (occurrence: DE)
  Receive Date: 20230720
  Receipt Date: 20240402
  Transmission Date: 20240715
  Serious: Yes (Other)
  Sender: FDA-Public Use
  Company Number: DE-Medice Arzneimittel-CC-NefroSPO190502

PATIENT
  Age: 61 Year
  Sex: Female
  Weight: 84 kg

DRUGS (21)
  1. PALLADONE [Suspect]
     Active Substance: HYDROMORPHONE HYDROCHLORIDE
     Indication: Product used for unknown indication
     Dosage: 8 MILLIGRAM, DAILY (INTAKE IN THE MORNING AND IN THE AFTERNOON)
     Route: 065
  2. HYDROMORPHONE HYDROCHLORIDE [Suspect]
     Active Substance: HYDROMORPHONE HYDROCHLORIDE
     Indication: Product used for unknown indication
     Dosage: 1.3 MILLIGRAM (1 CAPSULE PER DAY, WHEN NEEDED)
     Route: 048
  3. ASPIRIN [Suspect]
     Active Substance: ASPIRIN
     Indication: Product used for unknown indication
     Dosage: 100 MILLIGRAM, DAILY (INTAKE IN THE MORNING)
     Route: 048
  4. METOPROLOL SUCCINATE [Suspect]
     Active Substance: METOPROLOL SUCCINATE
     Indication: Product used for unknown indication
     Dosage: 95 MILLIGRAM (AS NEEDED)
     Route: 065
  5. ZINC OROTATE [Suspect]
     Active Substance: ZINC OROTATE
     Indication: Product used for unknown indication
     Dosage: 40 MILLIGRAM, DAILY (INTAKE IN THE MORNING)
     Route: 048
  6. CALCIUM CARBONATE [Suspect]
     Active Substance: CALCIUM CARBONATE
     Indication: Product used for unknown indication
     Dosage: 2000 MILLIGRAM, DAILY
     Route: 048
  7. TORSEMIDE [Suspect]
     Active Substance: TORSEMIDE
     Indication: Product used for unknown indication
     Dosage: 100 MILLIGRAM, DAILY (INTAKE IN THE MORNING AND IN THE AFTERNOON)
     Route: 065
  8. TORSEMIDE [Suspect]
     Active Substance: TORSEMIDE
     Dosage: 200 MILLIGRAM, DAILY, 100 MG, TWICE A DAY (INTAKE IN THE MORNING AND IN THE AFTERNOON)
     Route: 065
  9. REPAGLINIDE [Suspect]
     Active Substance: REPAGLINIDE
     Indication: Product used for unknown indication
     Dosage: 2 MG, TWICE A DAY (TAKE IN THE MORNING AND IN THE AFTERNOON)
     Route: 048
  10. EPOETIN BETA [Suspect]
     Active Substance: ERYTHROPOIETIN
     Indication: Product used for unknown indication
     Dosage: 4000 INTERNATIONAL UNIT, WEEKLY (ONCE A WEEK, ADMINISTRATION DURING DIALYSIS)
     Route: 048
  11. DIHYDROCODEINE THIOCYANATE [Suspect]
     Active Substance: DIHYDROCODEINE THIOCYANATE
     Indication: Product used for unknown indication
     Dosage: 20 DROPS
     Route: 048
  12. SEVELAMER CARBONATE [Suspect]
     Active Substance: SEVELAMER CARBONATE
     Indication: Product used for unknown indication
     Dosage: 4000 MILLIGRAM, QD, DOSAGE SCHEME 2-2-1
     Route: 048
  13. FERRLECIT [Suspect]
     Active Substance: SODIUM FERRIC GLUCONATE COMPLEX
     Indication: Product used for unknown indication
     Dosage: 62.5 MILLIGRAM, 2/WEEK
     Route: 042
  14. PANTOPRAZOLE [Suspect]
     Active Substance: PANTOPRAZOLE
     Indication: Product used for unknown indication
     Dosage: 20 MILLIGRAM (AS NEEDED)
     Route: 048
  15. CHOLECALCIFEROL [Suspect]
     Active Substance: CHOLECALCIFEROL
     Indication: Product used for unknown indication
     Dosage: 20000 IU
     Route: 048
  16. LYRICA [Suspect]
     Active Substance: PREGABALIN
     Indication: Product used for unknown indication
     Dosage: 75 MG, 1X/DAY (INTAKE IN THE AFTERNOON)
     Route: 048
  17. CANDESARTAN CILEXETIL [Suspect]
     Active Substance: CANDESARTAN CILEXETIL
     Indication: Product used for unknown indication
     Dosage: 8 MILLIGRAM, DAILY (INTAKE IN THE MORNING)
     Route: 048
  18. QUETIAPINE [Suspect]
     Active Substance: QUETIAPINE
     Indication: Product used for unknown indication
     Dosage: 25 MILLIGRAM (WHEN NEEDED)
     Route: 048
  19. LACTULOSE [Suspect]
     Active Substance: LACTULOSE
     Indication: Product used for unknown indication
     Dosage: WHEN NEEDED
     Route: 065
  20. LEVOTHYROXINE [Suspect]
     Active Substance: LEVOTHYROXINE\LEVOTHYROXINE SODIUM
     Indication: Product used for unknown indication
     Dosage: 200 MICROGRAM, DAILY (INTAKE IN THE MORNING)
     Route: 048
  21. CALCIUM POLYSTYRENE SULFONATE [Suspect]
     Active Substance: CALCIUM POLYSTYRENE SULFONATE
     Indication: Product used for unknown indication
     Dosage: 14.9 GRAM, 14.9 G, SUNDAYS AND MONDAYS, 1 SACHET
     Route: 065

REACTIONS (4)
  - Condition aggravated [Recovering/Resolving]
  - Rash [Recovering/Resolving]
  - Rash [Recovering/Resolving]
  - Pruritus [Recovering/Resolving]
